FAERS Safety Report 18201986 (Version 1)
Quarter: 2020Q3

REPORT INFORMATION
  Report Type: Spontaneous
  Country: FR (occurrence: FR)
  Receive Date: 20200827
  Receipt Date: 20200827
  Transmission Date: 20201103
  Serious: Yes (Other)
  Sender: FDA-Public Use
  Company Number: FR-UCBSA-2020033298

PATIENT
  Age: 84 Year
  Sex: Male
  Weight: 72 kg

DRUGS (12)
  1. LANSOPRAZOLE. [Suspect]
     Active Substance: LANSOPRAZOLE
     Indication: GASTRITIS PROPHYLAXIS
     Dosage: 15MG DAILY
     Route: 048
     Dates: end: 20200718
  2. ZYLORIC [Suspect]
     Active Substance: ALLOPURINOL
     Indication: PROPHYLAXIS
     Dosage: 100MG DAILY
     Route: 048
     Dates: end: 20200711
  3. ROCEPHINE [Suspect]
     Active Substance: CEFTRIAXONE SODIUM
     Indication: URINARY TRACT INFECTION
     Dosage: 1 DOSAGE FORM, ONCE DAILY (QD)
     Route: 041
     Dates: start: 20200710, end: 20200714
  4. AMLOR [Concomitant]
     Active Substance: AMLODIPINE BESYLATE
     Indication: HYPERTENSION
     Dosage: 1 DOSAGE FORM, ONCE DAILY (QD)
     Route: 048
     Dates: end: 20200718
  5. PLAVIX [Concomitant]
     Active Substance: CLOPIDOGREL BISULFATE
     Indication: CARDIOVASCULAR EVENT PROPHYLAXIS
     Dosage: 1 DOSAGE FORM, ONCE DAILY (QD)
     Route: 048
  6. XENETIX [Concomitant]
     Active Substance: IOBITRIDOL
     Indication: COMPUTERISED TOMOGRAM
     Dosage: UNK
     Dates: start: 20200711, end: 20200711
  7. RIFADINE [RIFAMPICIN] [Concomitant]
     Active Substance: RIFAMPIN
     Indication: ENDOCARDITIS
     Dosage: 1200 MILLIGRAM, ONCE DAILY (QD)
     Route: 048
     Dates: start: 20200626, end: 20200806
  8. KEPPRA [Suspect]
     Active Substance: LEVETIRACETAM
     Indication: PARTIAL SEIZURES
     Dosage: 1000MG DAILY
     Route: 048
     Dates: start: 20200711, end: 20200722
  9. GRANUDOXY [DOXYCYCLINE] [Suspect]
     Active Substance: DOXYCYCLINE
     Indication: ENDOCARDITIS
     Dosage: 200MG DAILY
     Route: 048
     Dates: start: 20200712, end: 20200714
  10. FUROSEMIDE. [Suspect]
     Active Substance: FUROSEMIDE
     Indication: CARDIAC FAILURE
     Dosage: 125MG DAILY
     Route: 041
     Dates: start: 20200629, end: 20200720
  11. KARDEGIC [Concomitant]
     Active Substance: ASPIRIN DL-LYSINE
     Indication: CARDIOVASCULAR EVENT PROPHYLAXIS
     Dosage: 75MG DAILY
     Route: 048
  12. VANCOMYCINE [VANCOMYCIN] [Suspect]
     Active Substance: VANCOMYCIN
     Indication: ENDOCARDITIS
     Dosage: 1400MG DAILY
     Route: 041
     Dates: start: 20200705, end: 20200713

REACTIONS (4)
  - Agranulocytosis [Recovered/Resolved]
  - Neutropenia [Recovered/Resolved]
  - Rash maculo-papular [Recovered/Resolved]
  - Thrombocytopenia [Recovering/Resolving]

NARRATIVE: CASE EVENT DATE: 20200713
